FAERS Safety Report 16445849 (Version 1)
Quarter: 2019Q2

REPORT INFORMATION
  Report Type: Spontaneous
  Country: PT (occurrence: PT)
  Receive Date: 20190618
  Receipt Date: 20190618
  Transmission Date: 20190711
  Serious: Yes (Death)
  Sender: FDA-Public Use
  Company Number: PT-ADAAP-201900185

PATIENT
  Age: 36 Year
  Sex: Male

DRUGS (3)
  1. 177LU-DOTA-TATE [Suspect]
     Active Substance: LUTETIUM OXODOTREOTIDE LU-177
     Indication: PARAGANGLION NEOPLASM MALIGNANT
     Dosage: 3 CYCLES
     Route: 065
     Dates: end: 201804
  2. PHENOXYBENZAMINE [Concomitant]
     Active Substance: PHENOXYBENZAMINE
     Indication: PRODUCT USED FOR UNKNOWN INDICATION
     Dosage: DOSE ESCALATING FROM 10 MG TO 30 MG/D
     Route: 065
  3. BISOPROLOL [Concomitant]
     Active Substance: BISOPROLOL
     Indication: PRODUCT USED FOR UNKNOWN INDICATION
     Route: 065

REACTIONS (1)
  - Completed suicide [Fatal]

NARRATIVE: CASE EVENT DATE: 201806
